FAERS Safety Report 23537242 (Version 1)
Quarter: 2024Q1

REPORT INFORMATION
  Report Type: Other
  Country: CN (occurrence: None)
  Receive Date: 20240219
  Receipt Date: 20240219
  Transmission Date: 20240410
  Serious: Yes (Other)
  Sender: FDA-Public Use
  Company Number: CN-ROCHE-3505459

PATIENT

DRUGS (4)
  1. BEVACIZUMAB [Suspect]
     Active Substance: BEVACIZUMAB
     Indication: Non-small cell lung cancer
     Dosage: ON DAY 1 IN A 21-DAY CYCLE
     Route: 042
  2. PACLITAXEL [Suspect]
     Active Substance: PACLITAXEL
     Indication: Non-small cell lung cancer
     Dosage: ON DAY 1 IN A 21-DAY CYCLE
     Route: 042
  3. CARBOPLATIN [Suspect]
     Active Substance: CARBOPLATIN
     Indication: Non-small cell lung cancer
     Dosage: AUC 5/6, ON DAY 1 IN A 21-DAY CYCLE
     Route: 042
  4. PEMETREXED [Suspect]
     Active Substance: PEMETREXED
     Indication: Non-small cell lung cancer
     Dosage: ON DAY 1 IN A 21-DAY CYCLE
     Route: 042

REACTIONS (33)
  - Pneumonia [Unknown]
  - Small intestinal perforation [Recovered/Resolved]
  - Rash [Unknown]
  - Lipase increased [Unknown]
  - Immune-mediated myocarditis [Unknown]
  - Platelet count decreased [Unknown]
  - Neutrophil count decreased [Recovered/Resolved]
  - White blood cell count decreased [Unknown]
  - Anaemia [Unknown]
  - Alanine aminotransferase increased [Unknown]
  - Proteinuria [Unknown]
  - Hyperlipidaemia [Unknown]
  - Infusion related reaction [Unknown]
  - Decreased appetite [Unknown]
  - Pruritus [Unknown]
  - Fatigue [Unknown]
  - Hypoaesthesia [Unknown]
  - Constipation [Unknown]
  - Nausea [Unknown]
  - Arthralgia [Unknown]
  - Amylase increased [Unknown]
  - Aspartate aminotransferase increased [Unknown]
  - Hypothyroidism [Unknown]
  - Pyrexia [Unknown]
  - Diarrhoea [Unknown]
  - Stomatitis [Unknown]
  - Pain in extremity [Unknown]
  - Hyperthyroidism [Unknown]
  - Hypoproteinaemia [Unknown]
  - Vomiting [Unknown]
  - Flushing [Unknown]
  - Oedema peripheral [Unknown]
  - Epistaxis [Unknown]
